FAERS Safety Report 4978350-X (Version None)
Quarter: 2006Q2

REPORT INFORMATION
  Report Type: 
  Country: None (occurrence: None)
  Receive Date: 20060414
  Receipt Date: 20060331
  Transmission Date: 20061013
  Serious: Yes (Hospitalization)
  Sender: FDA-Public Use
  Company Number: DE-2006-007433

PATIENT
  Age: 40 Year
  Sex: Female

DRUGS (1)
  1. BETAFERON (NTERFERON BETA - 1B)  INJECTION, 250?G [Suspect]
     Indication: RELAPSING-REMITTING MULTIPLE SCLEROSIS
     Dosage: SUBCUTANEOUS
     Route: 058
     Dates: start: 20040219

REACTIONS (1)
  - POLYARTHRITIS [None]
